FAERS Safety Report 10891062 (Version 1)
Quarter: 2015Q1

REPORT INFORMATION
  Report Type: Spontaneous
  Country: US (occurrence: US)
  Receive Date: 20150304
  Receipt Date: 20150304
  Transmission Date: 20150721
  Serious: Yes (Hospitalization, Congenital Anomaly, Other)
  Sender: FDA-Public Use
  Company Number: US-APOTEX-2015AP007074

PATIENT
  Sex: Female
  Weight: 4 kg

DRUGS (1)
  1. PAXIL [Suspect]
     Active Substance: PAROXETINE HYDROCHLORIDE
     Indication: PRODUCT USED FOR UNKNOWN INDICATION
     Dosage: 20 MG, QD
     Route: 064

REACTIONS (8)
  - Intestinal obstruction [Unknown]
  - Congenital diaphragmatic hernia [Unknown]
  - Cholelithiasis [Unknown]
  - Foetal exposure during pregnancy [Unknown]
  - Otitis media [Unknown]
  - Gastroenteritis [Unknown]
  - Heart disease congenital [Unknown]
  - Pertussis [Unknown]

NARRATIVE: CASE EVENT DATE: 19990406
